FAERS Safety Report 18199911 (Version 1)
Quarter: 2020Q3

REPORT INFORMATION
  Report Type: Spontaneous
  Country: US (occurrence: US)
  Receive Date: 20200826
  Receipt Date: 20200826
  Transmission Date: 20201103
  Serious: Yes (Hospitalization)
  Sender: FDA-Public Use
  Company Number: US-SA-2020SA224329

PATIENT

DRUGS (4)
  1. TRIAMCINOLONE [Concomitant]
     Active Substance: TRIAMCINOLONE
     Dosage: 120 MG
  2. LIDOCAINE HYDROCHLORIDE. [Suspect]
     Active Substance: LIDOCAINE HYDROCHLORIDE
     Dosage: 10 ML(10 MINS LATER)
  3. EPINEPHRINE. [Suspect]
     Active Substance: EPINEPHRINE
     Indication: BACK PAIN
  4. LIDOCAINE HYDROCHLORIDE. [Suspect]
     Active Substance: LIDOCAINE HYDROCHLORIDE
     Indication: BACK PAIN
     Dosage: 3 ML

REACTIONS (9)
  - Anxiety [Recovered/Resolved]
  - Cranial nerve disorder [Recovered/Resolved]
  - Dyskinesia [Recovered/Resolved]
  - Muscle strength abnormal [Recovered/Resolved]
  - Sedation [Recovered/Resolved]
  - Dysarthria [Recovered/Resolved]
  - Hypotension [Recovered/Resolved]
  - Myoclonus [Recovered/Resolved]
  - Sensory disturbance [Recovered/Resolved]
